FAERS Safety Report 21082728 (Version 1)
Quarter: 2022Q3

REPORT INFORMATION
  Report Type: Spontaneous
  Country: US (occurrence: None)
  Receive Date: 20220714
  Receipt Date: 20220714
  Transmission Date: 20221027
  Serious: Yes (Other)
  Sender: FDA-Public Use
  Company Number: US-ROCHE-3135615

PATIENT
  Sex: Male
  Weight: 73 kg

DRUGS (29)
  1. RITUXAN [Suspect]
     Active Substance: RITUXIMAB
     Indication: Diffuse large B-cell lymphoma
     Dosage: RECEIVED AS RCHOP
     Route: 065
     Dates: start: 2014
  2. RITUXAN [Suspect]
     Active Substance: RITUXIMAB
     Dosage: RECEIVED AS RICE
     Route: 065
     Dates: start: 2016, end: 2016
  3. RITUXAN [Suspect]
     Active Substance: RITUXIMAB
     Dosage: RECEIVED WITH REVLIMID
     Route: 065
     Dates: start: 2017, end: 201707
  4. RITUXAN [Suspect]
     Active Substance: RITUXIMAB
     Dosage: RECEIVED WITH POLIVY AND BENDAMUSTINE
     Route: 065
     Dates: start: 2019, end: 2020
  5. RITUXAN [Suspect]
     Active Substance: RITUXIMAB
     Dosage: RECEIVED WITH CISPLATIN, GEMCITABINE AND DEXAMETHASONE
     Route: 065
     Dates: start: 2020, end: 2020
  6. TECENTRIQ [Suspect]
     Active Substance: ATEZOLIZUMAB
     Indication: Diffuse large B-cell lymphoma
     Dosage: RECEIVED X 2 MONTHS ALONG WITH TAZEMETOSTAT
     Route: 041
     Dates: start: 2017, end: 2017
  7. POLIVY [Suspect]
     Active Substance: POLATUZUMAB VEDOTIN-PIIQ
     Indication: Diffuse large B-cell lymphoma
     Dosage: RECEIVED WITH BENDAMUSTINE AND RITUXAN
     Route: 065
     Dates: start: 2019, end: 2020
  8. CYCLOPHOSPHAMIDE [Concomitant]
     Active Substance: CYCLOPHOSPHAMIDE
     Indication: Diffuse large B-cell lymphoma
     Route: 065
     Dates: start: 2014
  9. CYCLOPHOSPHAMIDE [Concomitant]
     Active Substance: CYCLOPHOSPHAMIDE
     Route: 065
     Dates: start: 2016, end: 2017
  10. DOXORUBICIN [Concomitant]
     Active Substance: DOXORUBICIN
     Indication: Diffuse large B-cell lymphoma
     Route: 065
     Dates: start: 2014
  11. DOXORUBICIN [Concomitant]
     Active Substance: DOXORUBICIN
     Route: 065
     Dates: start: 2016, end: 2017
  12. PREDNISONE [Concomitant]
     Active Substance: PREDNISONE
     Indication: Diffuse large B-cell lymphoma
     Route: 065
     Dates: start: 2014
  13. PREDNISONE [Concomitant]
     Active Substance: PREDNISONE
     Route: 065
     Dates: start: 2016, end: 2017
  14. IFOSFAMIDE [Concomitant]
     Active Substance: IFOSFAMIDE
     Indication: Diffuse large B-cell lymphoma
     Route: 065
     Dates: start: 2016, end: 2016
  15. CARBOPLATIN [Concomitant]
     Active Substance: CARBOPLATIN
     Indication: Diffuse large B-cell lymphoma
     Route: 065
     Dates: start: 2016, end: 2016
  16. ETOPOSIDE [Concomitant]
     Active Substance: ETOPOSIDE
     Indication: Diffuse large B-cell lymphoma
     Dates: start: 2016, end: 2016
  17. ETOPOSIDE [Concomitant]
     Active Substance: ETOPOSIDE
     Indication: Diffuse large B-cell lymphoma
     Route: 065
     Dates: start: 2016, end: 2017
  18. ONCOVIN [Concomitant]
     Active Substance: VINCRISTINE SULFATE
     Indication: Diffuse large B-cell lymphoma
     Dates: start: 2016, end: 2017
  19. REVLIMID [Concomitant]
     Active Substance: LENALIDOMIDE
     Indication: Diffuse large B-cell lymphoma
     Dates: start: 2017, end: 201707
  20. REVLIMID [Concomitant]
     Active Substance: LENALIDOMIDE
     Dosage: RECEIVED WITH TAFASITAMAB
     Dates: start: 2020
  21. TAZEMETOSTAT [Concomitant]
     Active Substance: TAZEMETOSTAT
     Indication: Diffuse large B-cell lymphoma
     Dates: start: 2017, end: 2017
  22. BENDAMUSTINE [Concomitant]
     Active Substance: BENDAMUSTINE
     Indication: Diffuse large B-cell lymphoma
     Dates: start: 2019, end: 2020
  23. GEMCITABINE [Concomitant]
     Active Substance: GEMCITABINE
     Indication: Diffuse large B-cell lymphoma
     Route: 006
     Dates: start: 2020
  24. GEMCITABINE [Concomitant]
     Active Substance: GEMCITABINE
     Dates: start: 2021
  25. DEXAMETHASONE [Concomitant]
     Active Substance: DEXAMETHASONE
     Indication: Diffuse large B-cell lymphoma
     Dosage: 2 CYCLES
     Dates: start: 2020
  26. CISPLATIN [Concomitant]
     Active Substance: CISPLATIN
     Indication: Diffuse large B-cell lymphoma
     Dosage: 2 CYCLES AS RGDP
     Dates: start: 2020
  27. TAFASITAMAB-CXIX [Concomitant]
     Active Substance: TAFASITAMAB-CXIX
     Indication: Diffuse large B-cell lymphoma
     Dates: start: 2020
  28. OXALIPLATIN [Concomitant]
     Active Substance: OXALIPLATIN
     Indication: Diffuse large B-cell lymphoma
     Dates: start: 2021
  29. LONCASTUXIMAB TESIRINE [Concomitant]
     Active Substance: LONCASTUXIMAB TESIRINE
     Indication: Diffuse large B-cell lymphoma
     Dates: start: 2021, end: 2022

REACTIONS (2)
  - Diffuse large B-cell lymphoma recurrent [Not Recovered/Not Resolved]
  - Non-Hodgkin^s lymphoma [Not Recovered/Not Resolved]

NARRATIVE: CASE EVENT DATE: 20160101
